FAERS Safety Report 20248669 (Version 1)
Quarter: 2021Q4

REPORT INFORMATION
  Report Type: Spontaneous
  Country: US (occurrence: None)
  Receive Date: 20211228
  Receipt Date: 20211228
  Transmission Date: 20220304
  Serious: Yes (Hospitalization)
  Sender: FDA-Public Use
  Company Number: None

PATIENT
  Age: 73 Year
  Sex: Male
  Weight: 106.14 kg

DRUGS (1)
  1. AZITHROMYCIN [Suspect]
     Active Substance: AZITHROMYCIN
     Indication: Infection
     Dates: start: 20211129, end: 20211130

REACTIONS (4)
  - Chronic obstructive pulmonary disease [None]
  - Lip swelling [None]
  - Rash [None]
  - Angioedema [None]

NARRATIVE: CASE EVENT DATE: 20211130
